FAERS Safety Report 15464581 (Version 2)
Quarter: 2018Q4

REPORT INFORMATION
  Report Type: Spontaneous
  Country: US (occurrence: US)
  Receive Date: 20181004
  Receipt Date: 20181004
  Transmission Date: 20190204
  Serious: No
  Sender: FDA-Public Use
  Company Number: US-MELINTA-US-MDCO-17-00417

PATIENT
  Age: 62 Year
  Sex: Male

DRUGS (5)
  1. ORBACTIV [Suspect]
     Active Substance: ORITAVANCIN
     Route: 041
     Dates: start: 201708, end: 201708
  2. ORBACTIV [Suspect]
     Active Substance: ORITAVANCIN
     Indication: WOUND INFECTION
     Route: 041
  3. ORBACTIV [Suspect]
     Active Substance: ORITAVANCIN
     Route: 041
  4. ORBACTIV [Suspect]
     Active Substance: ORITAVANCIN
     Route: 041
  5. ORBACTIV [Suspect]
     Active Substance: ORITAVANCIN
     Route: 041

REACTIONS (2)
  - Hypotension [Unknown]
  - Feeling abnormal [Unknown]

NARRATIVE: CASE EVENT DATE: 201708
